FAERS Safety Report 13793695 (Version 1)
Quarter: 2017Q3

REPORT INFORMATION
  Report Type: Spontaneous
  Country: US (occurrence: US)
  Receive Date: 20170726
  Receipt Date: 20170726
  Transmission Date: 20171127
  Serious: No
  Sender: FDA-Public Use
  Company Number: None

PATIENT
  Age: 58 Year
  Sex: Female

DRUGS (10)
  1. OCALIVA [Suspect]
     Active Substance: OBETICHOLIC ACID
     Indication: BILIARY CIRRHOSIS PRIMARY
     Route: 048
     Dates: start: 20170120
  2. METOPROLOL. [Concomitant]
     Active Substance: METOPROLOL
  3. CRESTOR [Concomitant]
     Active Substance: ROSUVASTATIN CALCIUM
  4. HYDROCHLOROT [Concomitant]
     Active Substance: HYDROCHLOROTHIAZIDE
  5. LYRICA [Concomitant]
     Active Substance: PREGABALIN
  6. DEXILANT [Concomitant]
     Active Substance: DEXLANSOPRAZOLE
  7. TOPIRAMATE. [Concomitant]
     Active Substance: TOPIRAMATE
  8. VITAMIN D [Concomitant]
     Active Substance: CHOLECALCIFEROL
  9. TRAMADOL HCL [Concomitant]
     Active Substance: TRAMADOL HYDROCHLORIDE
  10. LISINOPRIL. [Concomitant]
     Active Substance: LISINOPRIL

REACTIONS (10)
  - Diarrhoea [None]
  - Headache [None]
  - Weight decreased [None]
  - Fatigue [None]
  - Pyrexia [None]
  - Malaise [None]
  - Arthralgia [None]
  - Drug intolerance [None]
  - Nausea [None]
  - Chills [None]

NARRATIVE: CASE EVENT DATE: 201706
